FAERS Safety Report 4297104-3 (Version None)
Quarter: 2004Q1

REPORT INFORMATION
  Report Type: 
  Country: None (occurrence: None)
  Receive Date: 20040213
  Receipt Date: 20040204
  Transmission Date: 20041129
  Serious: Yes (Other)
  Sender: FDA-Public Use
  Company Number: 204549

PATIENT
  Age: 64 Year
  Sex: Male

DRUGS (6)
  1. RITUXAN [Suspect]
     Indication: MANTLE CELL LYMPHOMA
     Dates: start: 20020117, end: 20020207
  2. CYCLOPHOSPHAMIDE [Suspect]
     Indication: MANTLE CELL LYMPHOMA
     Dosage: 1150 MG,
     Dates: start: 20021115, end: 20021206
  3. CARBOPLATIN [Suspect]
     Indication: MANTLE CELL LYMPHOMA
     Dosage: 530 MG,
     Dates: start: 20021115, end: 20021206
  4. ETOPOSIDE [Suspect]
     Indication: MANTLE CELL LYMPHOMA
     Dosage: 150 MG
     Dates: start: 20021115
  5. DEXAMETHASONE [Suspect]
     Indication: MANTLE CELL LYMPHOMA
     Dosage: 40 MG
     Dates: start: 20031115, end: 20021206
  6. METHOTREXATE [Concomitant]

REACTIONS (5)
  - DISEASE RECURRENCE [None]
  - MANTLE CELL LYMPHOMA [None]
  - PLATELET COUNT DECREASED [None]
  - STEM CELL TRANSPLANT [None]
  - WHITE BLOOD CELL COUNT DECREASED [None]
